FAERS Safety Report 12356358 (Version 1)
Quarter: 2016Q2

REPORT INFORMATION
  Report Type: Spontaneous
  Country: US (occurrence: US)
  Receive Date: 20160511
  Receipt Date: 20160511
  Transmission Date: 20160815
  Serious: No
  Sender: FDA-Public Use
  Company Number: US-MDT-ADR-2015-02410

PATIENT
  Age: 43 Year
  Sex: Female

DRUGS (1)
  1. LIORESAL [Suspect]
     Active Substance: BACLOFEN
     Dosage: 540 MCG/DAY
     Route: 037

REACTIONS (3)
  - Performance status decreased [Unknown]
  - Pain [Unknown]
  - Radiculopathy [Unknown]
